FAERS Safety Report 17237005 (Version 3)
Quarter: 2020Q1

REPORT INFORMATION
  Report Type: Spontaneous
  Country: US (occurrence: US)
  Receive Date: 20200106
  Receipt Date: 20200212
  Transmission Date: 20200409
  Serious: No
  Sender: FDA-Public Use
  Company Number: US-JNJFOC-20191247452

PATIENT
  Sex: Female
  Weight: 84.37 kg

DRUGS (4)
  1. DURAGESIC [Suspect]
     Active Substance: FENTANYL
     Indication: ENCEPHALOMYELITIS
     Route: 062
     Dates: start: 201902
  2. DURAGESIC [Suspect]
     Active Substance: FENTANYL
     Route: 062
  3. FLECTOR [Suspect]
     Active Substance: DICLOFENAC EPOLAMINE
     Indication: PLANTAR FASCIITIS
     Route: 062
     Dates: start: 201902
  4. FLECTOR [Suspect]
     Active Substance: DICLOFENAC EPOLAMINE
     Indication: FLANK PAIN

REACTIONS (3)
  - Drug ineffective [Unknown]
  - Prescribed overdose [Unknown]
  - Hyperhidrosis [Unknown]
